FAERS Safety Report 22132256 (Version 1)
Quarter: 2023Q1

REPORT INFORMATION
  Report Type: Spontaneous
  Country: US (occurrence: None)
  Receive Date: 20230322
  Receipt Date: 20230322
  Transmission Date: 20230418
  Serious: Yes (Other)
  Sender: FDA-Public Use
  Company Number: None

PATIENT
  Sex: Female

DRUGS (3)
  1. MYCOPHENOLIC ACID [Suspect]
     Active Substance: MYCOPHENOLIC ACID
     Indication: Renal transplant
     Dosage: TAKE 2 TABLETS (720 MG TOTAL) BY MOUTH EVERY 12 (TWELVE) HOURS?
     Route: 048
     Dates: start: 20190221
  2. PREDNISOLONE SUS 1% OP [Concomitant]
  3. TACROLIMUS [Concomitant]
     Active Substance: TACROLIMUS

REACTIONS (3)
  - Hypertension [None]
  - Headache [None]
  - Therapy interrupted [None]
